FAERS Safety Report 23769112 (Version 1)
Quarter: 2024Q2

REPORT INFORMATION
  Report Type: Spontaneous
  Country: US (occurrence: None)
  Receive Date: 20240421
  Receipt Date: 20240421
  Transmission Date: 20240715
  Serious: Yes (Hospitalization)
  Sender: FDA-Public Use
  Company Number: None

PATIENT
  Age: 67 Year
  Sex: Male
  Weight: 102 kg

DRUGS (1)
  1. APIXABAN [Suspect]
     Active Substance: APIXABAN
     Indication: Cardiac failure congestive
     Dosage: FREQUENCY : DAILY;?
     Route: 048
     Dates: start: 20220415

REACTIONS (7)
  - Anaemia [None]
  - Treatment noncompliance [None]
  - Hyperglycaemia [None]
  - Acute kidney injury [None]
  - Haematocrit decreased [None]
  - Fatigue [None]
  - Haemoptysis [None]

NARRATIVE: CASE EVENT DATE: 20230816
